FAERS Safety Report 22817470 (Version 3)
Quarter: 2024Q4

REPORT INFORMATION
  Report Type: Spontaneous
  Country: FR (occurrence: FR)
  Receive Date: 20230813
  Receipt Date: 20241206
  Transmission Date: 20250115
  Serious: Yes (Other)
  Sender: AUROBINDO
  Company Number: FR-MLMSERVICE-20230725-4435933-1

PATIENT
  Age: 36 Year
  Sex: Female

DRUGS (8)
  1. LIDOCAINE [Suspect]
     Active Substance: LIDOCAINE
     Indication: Epidural anaesthesia
     Dosage: 300 MILLIGRAM
     Route: 008
  2. LIDOCAINE [Suspect]
     Active Substance: LIDOCAINE
     Dosage: 600 MILLIGRAM
     Route: 008
  3. EPINEPHRINE\LIDOCAINE [Suspect]
     Active Substance: EPINEPHRINE\LIDOCAINE
     Indication: Epidural anaesthesia
     Dosage: 1 DOSAGE FORM TOTAL
     Route: 008
  4. BUPIVACAINE [Suspect]
     Active Substance: BUPIVACAINE
     Indication: Epidural anaesthesia
     Dosage: 6.25 MILLIGRAM TOTAL
     Route: 008
  5. ROPIVACAINE [Suspect]
     Active Substance: ROPIVACAINE
     Indication: Labour pain
     Dosage: UNK
     Route: 037
  6. SUFENTANIL [Suspect]
     Active Substance: SUFENTANIL
     Indication: Epidural analgesia
     Dosage: 1 DOSAGE FORM TOTAL
     Route: 008
  7. SUFENTANIL [Suspect]
     Active Substance: SUFENTANIL
     Dosage: 5 MICROGRAM/MILLILITER
     Route: 065
  8. EPINEPHRINE [Suspect]
     Active Substance: EPINEPHRINE
     Indication: Epidural anaesthesia
     Dosage: 300 MILLIGRAM (300 MG OF LIDOCAINE-ADRENALINE 2%)
     Route: 008

REACTIONS (9)
  - Monoplegia [Unknown]
  - Myelitis [Unknown]
  - Noninfectious myelitis [Unknown]
  - Pain in extremity [Unknown]
  - Paraesthesia [Unknown]
  - Toxicity to various agents [Unknown]
  - Maternal exposure during delivery [Unknown]
  - Off label use [Unknown]
  - Exposure during pregnancy [Unknown]
